FAERS Safety Report 7710480-1 (Version None)
Quarter: 2011Q3

REPORT INFORMATION
  Report Type: 
  Country: None (occurrence: None)
  Receive Date: 20110825
  Receipt Date: 20110816
  Transmission Date: 20111222
  Serious: Yes (Hospitalization)
  Sender: FDA-Public Use
  Company Number: US-B.I. PHARMACEUTICALS,INC./RIDGEFIELD-2011-BP-18395BP

PATIENT
  Age: 89 Year
  Sex: Male
  Weight: 72.57 kg

DRUGS (3)
  1. PRIMIDONE [Concomitant]
  2. COZAAR [Concomitant]
  3. PRADAXA [Suspect]

REACTIONS (3)
  - CEREBROVASCULAR ACCIDENT [None]
  - OCCULT BLOOD POSITIVE [None]
  - ANAEMIA [None]
